FAERS Safety Report 7433439-0 (Version None)
Quarter: 2011Q2

REPORT INFORMATION
  Report Type: 
  Country: None (occurrence: None)
  Receive Date: 20110422
  Receipt Date: 20110413
  Transmission Date: 20111010
  Serious: Yes (Hospitalization, Other)
  Sender: FDA-Public Use
  Company Number: US-ROCHE-467340

PATIENT
  Sex: Male
  Weight: 73.9 kg

DRUGS (8)
  1. ZITHROMAX [Concomitant]
     Dosage: GENERIC REPORTED AS ZITHROMAX.
     Route: 048
     Dates: start: 19980714
  2. PERCOCET [Concomitant]
     Dosage: GENERIC REPORTED AS OXYCODONE W/APAP.  STRENGTH REPORTED AS 5/325.
     Route: 048
     Dates: start: 19981007
  3. FLUMADINE [Concomitant]
     Route: 048
     Dates: start: 19981228
  4. TRIAMCINOLONE [Concomitant]
     Route: 061
     Dates: start: 19981021
  5. LIBRAX [Concomitant]
     Route: 048
     Dates: start: 19981228
  6. ACCUPRIL [Concomitant]
     Route: 048
     Dates: start: 19980826
  7. ACCUTANE [Suspect]
     Indication: ACNE
     Route: 048
     Dates: start: 19980331, end: 19980430
  8. ACCUTANE [Suspect]
     Route: 048
     Dates: start: 19980714, end: 19990101

REACTIONS (34)
  - GASTROINTESTINAL STOMA COMPLICATION [None]
  - PLEURAL EFFUSION [None]
  - CENTRAL NERVOUS SYSTEM LESION [None]
  - FEELING OF DESPAIR [None]
  - GASTROINTESTINAL PERFORATION [None]
  - INGUINAL HERNIA [None]
  - WOUND INFECTION [None]
  - HAEMORRHOIDS [None]
  - SMALL INTESTINAL OBSTRUCTION [None]
  - ILEUS [None]
  - COLITIS ULCERATIVE [None]
  - PELVIC ABSCESS [None]
  - POUCHITIS [None]
  - HAMARTOMA [None]
  - SEPSIS [None]
  - DIVERTICULITIS [None]
  - COLONIC POLYP [None]
  - HEADACHE [None]
  - INTRA-ABDOMINAL HAEMORRHAGE [None]
  - CHRONIC SINUSITIS [None]
  - HAEMATOCHEZIA [None]
  - COLITIS [None]
  - PELVIC INFECTION [None]
  - IRRITABLE BOWEL SYNDROME [None]
  - PSEUDOPOLYP [None]
  - CROHN'S DISEASE [None]
  - DRY MOUTH [None]
  - PERITONITIS [None]
  - POST LUMBAR PUNCTURE SYNDROME [None]
  - MENINGITIS VIRAL [None]
  - PAIN IN EXTREMITY [None]
  - INFLAMMATORY BOWEL DISEASE [None]
  - UMBILICAL HERNIA [None]
  - LIP DRY [None]
